FAERS Safety Report 5649318-5 (Version None)
Quarter: 2008Q1

REPORT INFORMATION
  Report Type: 
  Country: None (occurrence: None)
  Receive Date: 20080304
  Receipt Date: 20071218
  Transmission Date: 20080703
  Serious: No
  Sender: FDA-Public Use
  Company Number: US-BAYER-200717131NA

PATIENT
  Age: 58 Year
  Sex: Female
  Weight: 61 kg

DRUGS (3)
  1. ULTRAVIST 300 [Suspect]
     Indication: COMPUTERISED TOMOGRAM
     Dosage: TOTAL DAILY DOSE: 120 ML
     Route: 042
     Dates: start: 20071218, end: 20071218
  2. INSULIN [Concomitant]
  3. METFORMIN HCL [Concomitant]

REACTIONS (5)
  - COUGH [None]
  - DYSPHONIA [None]
  - FLUSHING [None]
  - NASAL CONGESTION [None]
  - NAUSEA [None]
